FAERS Safety Report 15887476 (Version 1)
Quarter: 2019Q1

REPORT INFORMATION
  Report Type: Spontaneous
  Country: IN (occurrence: IN)
  Receive Date: 20190130
  Receipt Date: 20190130
  Transmission Date: 20190417
  Serious: Yes (Life-Threatening, Hospitalization, Other)
  Sender: FDA-Public Use
  Company Number: IN-LUPIN PHARMACEUTICALS INC.-2019-00370

PATIENT
  Age: 23 Year
  Sex: Female

DRUGS (9)
  1. OLANZAPINE. [Suspect]
     Active Substance: OLANZAPINE
     Indication: OBSESSIVE-COMPULSIVE DISORDER
     Dosage: 20 MG, UNK, (NEARLY 4 YEARS)
     Route: 065
  2. OLANZAPINE. [Suspect]
     Active Substance: OLANZAPINE
     Indication: INTELLECTUAL DISABILITY
     Dosage: 20 MG, UNK
     Route: 065
  3. ESCITALOPRAM OXALATE. [Suspect]
     Active Substance: ESCITALOPRAM OXALATE
     Indication: INTELLECTUAL DISABILITY
  4. ESCITALOPRAM OXALATE. [Suspect]
     Active Substance: ESCITALOPRAM OXALATE
     Indication: SCHIZOPHRENIA
  5. FLUOXETINE [Suspect]
     Active Substance: FLUOXETINE HYDROCHLORIDE
     Indication: SCHIZOPHRENIA
  6. FLUOXETINE [Suspect]
     Active Substance: FLUOXETINE HYDROCHLORIDE
     Indication: INTELLECTUAL DISABILITY
     Dosage: UNK
     Route: 065
  7. OLANZAPINE. [Suspect]
     Active Substance: OLANZAPINE
     Indication: SCHIZOPHRENIA
  8. FLUOXETINE [Suspect]
     Active Substance: FLUOXETINE HYDROCHLORIDE
     Indication: OBSESSIVE-COMPULSIVE DISORDER
     Dosage: 20 MG, UNK (NEARLY 4 YEARS)
     Route: 065
  9. ESCITALOPRAM OXALATE. [Suspect]
     Active Substance: ESCITALOPRAM OXALATE
     Indication: OBSESSIVE-COMPULSIVE DISORDER
     Dosage: 10 MG, UNK
     Route: 065

REACTIONS (11)
  - Seizure [Recovered/Resolved]
  - Cerebral atrophy [Recovered/Resolved]
  - Dysphoria [Recovered/Resolved]
  - Tongue biting [Recovered/Resolved]
  - Postictal state [Recovered/Resolved]
  - Confusional state [Recovered/Resolved]
  - Self-medication [Unknown]
  - Discomfort [Recovered/Resolved]
  - Altered state of consciousness [Recovered/Resolved]
  - Sleep disorder [Recovered/Resolved]
  - Crying [Recovered/Resolved]
